FAERS Safety Report 15275450 (Version 1)
Quarter: 2018Q3

REPORT INFORMATION
  Report Type: Spontaneous
  Country: US (occurrence: US)
  Receive Date: 20180814
  Receipt Date: 20180814
  Transmission Date: 20181010
  Serious: Yes (Death, Other)
  Sender: FDA-Public Use
  Company Number: US-MYLANLABS-2018M1061059

PATIENT
  Age: 36 Year
  Sex: Male
  Weight: 101.5 kg

DRUGS (3)
  1. ALPRAZOLAM. [Suspect]
     Active Substance: ALPRAZOLAM
     Indication: PRODUCT USED FOR UNKNOWN INDICATION
     Dosage: UNK
     Route: 065
  2. ZOLPIDEM [Suspect]
     Active Substance: ZOLPIDEM\ZOLPIDEM TARTRATE
     Indication: PRODUCT USED FOR UNKNOWN INDICATION
     Dosage: UNK
     Route: 065
  3. FENTANYL TRANSDERMAL SYSTEM [Suspect]
     Active Substance: FENTANYL
     Indication: PRODUCT USED FOR UNKNOWN INDICATION
     Dosage: 50 ?G, QH
     Route: 062

REACTIONS (10)
  - Pulmonary oedema [Unknown]
  - Splenomegaly [Unknown]
  - Cardiac hypertrophy [Unknown]
  - Product quality issue [Fatal]
  - Brain oedema [Unknown]
  - Toxicity to various agents [Fatal]
  - Off label use [Unknown]
  - Drug level increased [Fatal]
  - Pulmonary congestion [Unknown]
  - Urinary retention [Unknown]

NARRATIVE: CASE EVENT DATE: 20160915
